FAERS Safety Report 8564310-9 (Version None)
Quarter: 2012Q3

REPORT INFORMATION
  Report Type: 
  Country: None (occurrence: None)
  Receive Date: 20120803
  Receipt Date: 20120726
  Transmission Date: 20120928
  Serious: Yes (Hospitalization)
  Sender: FDA-Public Use
  Company Number: CA-JNJFOC-20120104133

PATIENT
  Sex: Female
  Weight: 75 kg

DRUGS (4)
  1. REMICADE [Suspect]
     Indication: RHEUMATOID ARTHRITIS
     Route: 042
     Dates: start: 20030203
  2. METHOTREXATE [Concomitant]
     Route: 065
  3. REMICADE [Suspect]
     Route: 042
     Dates: start: 20030206, end: 20111223
  4. CELEBREX [Concomitant]
     Route: 065

REACTIONS (4)
  - DEMENTIA [None]
  - FALL [None]
  - PATELLA FRACTURE [None]
  - CELLULITIS [None]
